FAERS Safety Report 5968573-5 (Version None)
Quarter: 2008Q4

REPORT INFORMATION
  Report Type: 
  Country: None (occurrence: None)
  Receive Date: 20081126
  Receipt Date: 20081112
  Transmission Date: 20090506
  Serious: Yes (Hospitalization, Other)
  Sender: FDA-Public Use
  Company Number: GB-BAYER-200826552GPV

PATIENT
  Age: 55 Year
  Sex: Female
  Weight: 38 kg

DRUGS (9)
  1. MOXIFLOXACIN OR PLACEBO [Suspect]
     Indication: PULMONARY TUBERCULOSIS
     Route: 048
     Dates: start: 20080721, end: 20080916
  2. RIFAMPICIN [Suspect]
     Indication: PULMONARY TUBERCULOSIS
     Route: 048
     Dates: start: 20080721, end: 20080916
  3. PYRAZINAMIDE [Suspect]
     Indication: PULMONARY TUBERCULOSIS
     Route: 048
     Dates: start: 20080721, end: 20080916
  4. ISONIAZID OR PLACEBO [Suspect]
     Indication: PULMONARY TUBERCULOSIS
     Route: 048
     Dates: start: 20080721, end: 20080916
  5. ETHAMBUTOL OR PLACEBO [Suspect]
     Indication: PULMONARY TUBERCULOSIS
     Route: 048
     Dates: start: 20080721, end: 20080916
  6. RIDAQ [Concomitant]
     Indication: DRUG USE FOR UNKNOWN INDICATION
     Route: 048
     Dates: start: 20080501
  7. RIDAQ [Concomitant]
     Route: 048
     Dates: start: 20080101
  8. NORVASC [Concomitant]
     Indication: DRUG USE FOR UNKNOWN INDICATION
     Route: 048
     Dates: start: 20080101
  9. NORVASC [Concomitant]
     Route: 048
     Dates: start: 20080501

REACTIONS (3)
  - BLOOD PRESSURE FLUCTUATION [None]
  - DIABETES MELLITUS [None]
  - HEPATITIS [None]
